FAERS Safety Report 5963077-8 (Version None)
Quarter: 2008Q4

REPORT INFORMATION
  Report Type: 
  Country: None (occurrence: None)
  Receive Date: 20081120
  Receipt Date: 20081107
  Transmission Date: 20090506
  Serious: Yes (Death)
  Sender: FDA-Public Use
  Company Number: ALK_00751_2008

PATIENT
  Sex: Male

DRUGS (1)
  1. VIVITROL [Suspect]
     Indication: DRUG USE FOR UNKNOWN INDICATION
     Dosage: 380 MG 1X MONTH INTRAMUSCULAR
     Route: 030

REACTIONS (1)
  - DEATH [None]
